FAERS Safety Report 10080107 (Version 1)
Quarter: 2014Q2

REPORT INFORMATION
  Report Type: Report from Study
  Country: US (occurrence: US)
  Receive Date: 20140415
  Receipt Date: 20140415
  Transmission Date: 20141212
  Serious: Yes (Hospitalization)
  Sender: FDA-Public Use
  Company Number: PHEH2014US007384

PATIENT
  Sex: Female

DRUGS (2)
  1. TOBI [Suspect]
     Dosage: 300 MG, BID
     Route: 055
  2. TOBI [Suspect]
     Dosage: 300 MG, BID
     Route: 055
     Dates: start: 2010

REACTIONS (1)
  - Pseudomonas infection [Unknown]
